FAERS Safety Report 9337350 (Version 1)
Quarter: 2013Q2

REPORT INFORMATION
  Report Type: Report from Study
  Country: MX (occurrence: MX)
  Receive Date: 20130607
  Receipt Date: 20130607
  Transmission Date: 20140414
  Serious: Yes (Hospitalization)
  Sender: FDA-Public Use
  Company Number: PHHY2013MX057918

PATIENT
  Age: 58 Year
  Sex: Female

DRUGS (1)
  1. DIOVAN [Suspect]
     Indication: HYPERTENSION
     Dosage: 2 DF(160MG), DAILY
     Route: 048

REACTIONS (4)
  - Eating disorder [Recovered/Resolved]
  - Feeling abnormal [Recovered/Resolved]
  - Swelling face [Recovered/Resolved]
  - Asthenia [Recovered/Resolved]
